FAERS Safety Report 5196426-1 (Version None)
Quarter: 2006Q4

REPORT INFORMATION
  Report Type: 
  Country: None (occurrence: None)
  Receive Date: 20061226
  Receipt Date: 20061213
  Transmission Date: 20070319
  Serious: Yes (Life-Threatening)
  Sender: FDA-Public Use
  Company Number: 2006BH015057

PATIENT
  Age: 45 Year
  Sex: Female

DRUGS (3)
  1. EXTRANEAL [Suspect]
     Indication: PERITONEAL DIALYSIS
     Dosage: IP
     Route: 032
  2. INSULIN [Concomitant]
  3. INSULIN GLARGINE [Concomitant]

REACTIONS (13)
  - BODY TEMPERATURE DECREASED [None]
  - COMA [None]
  - DEVICE INTERACTION [None]
  - DIZZINESS [None]
  - EYE MOVEMENT DISORDER [None]
  - HEMIPARESIS [None]
  - HYPOGLYCAEMIA [None]
  - LABORATORY TEST INTERFERENCE [None]
  - NAUSEA [None]
  - NIGHT SWEATS [None]
  - SLUGGISHNESS [None]
  - TORTICOLLIS [None]
  - VOMITING [None]
